FAERS Safety Report 5016459-5 (Version None)
Quarter: 2006Q2

REPORT INFORMATION
  Report Type: 
  Country: None (occurrence: None)
  Receive Date: 20060602
  Receipt Date: 20050706
  Transmission Date: 20061013
  Serious: Yes (Life-Threatening, Hospitalization)
  Sender: FDA-Public Use
  Company Number: 200516253GDDC

PATIENT
  Age: 56 Year
  Sex: Female
  Weight: 59 kg

DRUGS (9)
  1. TAXOTERE [Suspect]
     Indication: BREAST CANCER
     Route: 042
     Dates: start: 20050523, end: 20050613
  2. HYDROCHLOROTHIAZIDE [Concomitant]
     Indication: HYPERTENSION
     Route: 048
  3. NORVASC [Concomitant]
     Indication: HYPERTENSION
     Route: 048
  4. GEMFIBROZIL [Concomitant]
     Indication: HYPERTENSION
     Route: 048
  5. PRINIVIL [Concomitant]
     Indication: HYPERTENSION
     Route: 048
  6. COUMADIN [Concomitant]
     Indication: PROPHYLAXIS
     Route: 048
     Dates: start: 20050218
  7. NEURONTIN [Concomitant]
     Indication: NEURALGIA
     Route: 048
     Dates: start: 20050208
  8. GLYBURIDE [Concomitant]
     Indication: DIABETES MELLITUS
     Route: 048
     Dates: start: 20050502
  9. GENTAMICIN [Concomitant]
     Indication: CONJUNCTIVITIS
     Dosage: DOSE: 1-2
     Dates: start: 20050502

REACTIONS (5)
  - ANAEMIA [None]
  - CREATININE RENAL CLEARANCE DECREASED [None]
  - DEHYDRATION [None]
  - HYPOGLYCAEMIA [None]
  - NAUSEA [None]
